FAERS Safety Report 6230333-8 (Version None)
Quarter: 2009Q2

REPORT INFORMATION
  Report Type: 
  Country: None (occurrence: None)
  Receive Date: 20090611
  Receipt Date: 20090601
  Transmission Date: 20091009
  Serious: No
  Sender: FDA-Public Use
  Company Number: DSU-2009-00905

PATIENT
  Age: 69 Year
  Sex: Female
  Weight: 86.1834 kg

DRUGS (6)
  1. WELCHOL [Suspect]
     Indication: HYPERCHOLESTEROLAEMIA
     Dosage: 3750 MG (1875 MG, BID), PER ORAL
     Route: 048
     Dates: start: 20090401
  2. WELCHOL [Suspect]
     Indication: TYPE 2 DIABETES MELLITUS
     Dosage: 3750 MG (1875 MG, BID), PER ORAL
     Route: 048
     Dates: start: 20090401
  3. SYNTHROID (LEVOTHYROXINE SODIUM) (TABLET) (LEVOTHYROXINE SODIUM) [Concomitant]
  4. NEXIUM (ESOMEPRAZOLE) (CAPSULE) (ESOMEPRAZOLE) [Concomitant]
  5. LOTREL (AMLODIPINE, BENAZEPRIL HYDROCHLORIDE) (TABLET) (AMLODIPINE, BE [Concomitant]
  6. SINGULAIR (MONTELUKAST) (TABLET) (MONTELUKAST) [Concomitant]

REACTIONS (1)
  - DYSPHAGIA [None]
